FAERS Safety Report 13676340 (Version 1)
Quarter: 2017Q2

REPORT INFORMATION
  Report Type: Report from Study
  Country: AU (occurrence: AU)
  Receive Date: 20170622
  Receipt Date: 20170622
  Transmission Date: 20170830
  Serious: Yes (Other)
  Sender: FDA-Public Use
  Company Number: AU-ASTRAZENECA-2017SE55450

PATIENT
  Sex: Female
  Weight: 52 kg

DRUGS (1)
  1. IRESSA [Suspect]
     Active Substance: GEFITINIB
     Indication: LUNG NEOPLASM MALIGNANT
     Route: 048

REACTIONS (4)
  - Nail disorder [Not Recovered/Not Resolved]
  - Malignant neoplasm progression [Unknown]
  - Dry skin [Unknown]
  - Headache [Unknown]
